FAERS Safety Report 7583337-7 (Version None)
Quarter: 2011Q2

REPORT INFORMATION
  Report Type: 
  Country: None (occurrence: None)
  Receive Date: 20110630
  Receipt Date: 20110620
  Transmission Date: 20111010
  Serious: Yes (Hospitalization, Other)
  Sender: FDA-Public Use
  Company Number: GB-JNJFOC-20110609334

PATIENT
  Age: 31 Year
  Sex: Male
  Weight: 70 kg

DRUGS (3)
  1. REMICADE [Suspect]
     Indication: CROHN'S DISEASE
     Dosage: DURATION: 14 DAYS
     Route: 042
     Dates: start: 20100412, end: 20100426
  2. AZATHIOPRINE [Suspect]
     Indication: CROHN'S DISEASE
     Route: 058
     Dates: start: 20070101, end: 20100513
  3. METHOTREXATE [Suspect]
     Indication: CROHN'S DISEASE
     Route: 048
     Dates: start: 20100601, end: 20110527

REACTIONS (1)
  - T-CELL TYPE ACUTE LEUKAEMIA [None]
